FAERS Safety Report 5153141-8 (Version None)
Quarter: 2006Q4

REPORT INFORMATION
  Report Type: 
  Country: None (occurrence: None)
  Receive Date: 20061117
  Receipt Date: 20061114
  Transmission Date: 20070319
  Serious: Yes (Other)
  Sender: FDA-Public Use
  Company Number: FR-GLAXOSMITHKLINE-B0446678A

PATIENT
  Age: 40 Year
  Sex: Female

DRUGS (2)
  1. AUGMENTIN '125' [Suspect]
     Dosage: 1G THREE TIMES PER DAY
     Route: 048
     Dates: start: 20061031, end: 20061109
  2. ACETAMINOPHEN [Concomitant]
     Route: 048
     Dates: start: 20061031

REACTIONS (3)
  - DIARRHOEA [None]
  - FATIGUE [None]
  - NEUTROPENIA [None]
